FAERS Safety Report 24593676 (Version 1)
Quarter: 2024Q4

REPORT INFORMATION
  Report Type: Spontaneous
  Country: US (occurrence: US)
  Receive Date: 20241108
  Receipt Date: 20241108
  Transmission Date: 20250115
  Serious: Yes (Hospitalization)
  Sender: BAXTER
  Company Number: US-BAXTER-2024BAX027005

PATIENT
  Age: 61 Year
  Sex: Male
  Weight: 95.6 kg

DRUGS (16)
  1. CYCLOPHOSPHAMIDE [Suspect]
     Active Substance: CYCLOPHOSPHAMIDE
     Dosage: 60-74 YRS: 250 MG/M2; CYCLE: 1, 3, 5, 7 , EVERY 12 HRS X 6 DOSES; CYCLIC
     Route: 042
  2. DOXORUBICIN [Suspect]
     Active Substance: DOXORUBICIN
     Dosage: 60-74 YRS: 37.5 MG/M2, CYCLE: 1, 3, 5, 7, DAY 4; CYCLIC
     Route: 042
  3. MESNA [Suspect]
     Active Substance: MESNA
     Dosage: UNK
     Route: 042
  4. VINCRISTINE SULFATE [Suspect]
     Active Substance: VINCRISTINE SULFATE
     Dosage: 60-74 YRS: 2 MG; CYCLE: 1, 3, 5, 7, DAY 1, DAY 8; CYCLIC
     Route: 042
  5. RITUXIMAB [Suspect]
     Active Substance: RITUXIMAB
     Dosage: 375 MG/M2, CYCLE: 1-4; DAY 1, DAY 8; CYCLIC
     Route: 042
  6. INOTUZUMAB OZOGAMICIN [Suspect]
     Active Substance: INOTUZUMAB OZOGAMICIN
     Indication: Acute lymphocytic leukaemia
     Dosage: UNK
     Route: 065
     Dates: end: 20240201
  7. INOTUZUMAB OZOGAMICIN [Suspect]
     Active Substance: INOTUZUMAB OZOGAMICIN
     Indication: Philadelphia chromosome negative
  8. INOTUZUMAB OZOGAMICIN [Suspect]
     Active Substance: INOTUZUMAB OZOGAMICIN
     Indication: B-cell type acute leukaemia
  9. CYTARABINE [Suspect]
     Active Substance: CYTARABINE
     Dosage: 100 MG, CYCLE: 1-4, DAY 2, DAY 8; CYCLIC
     Route: 037
     Dates: start: 20240126, end: 20240126
  10. CYTARABINE [Suspect]
     Active Substance: CYTARABINE
     Dosage: 4400 MG; 60-74 YRS: 1 G/M2/DOSE, CYCLE: 2, 4, 6, 8, EVERY 12 HRS X 4, DAYS 2, 3; CYCLIC
     Route: 042
     Dates: start: 20240126, end: 20240127
  11. METHOTREXATE SODIUM [Suspect]
     Active Substance: METHOTREXATE SODIUM
     Dosage: 6 MG, CYCLE: 1-4, DAY 2, DAY 8; CYCLIC
     Route: 037
  12. METHOTREXATE SODIUM [Suspect]
     Active Substance: METHOTREXATE SODIUM
     Dosage: 553 MG CYCLIC (60-74 YRS: 500 MG/M2; CYCLE: 2, 4, 6, 8, DAY 1)
     Route: 042
     Dates: end: 20240201
  13. METHYLPREDNISOLONE SODIUM SUCCINATE [Suspect]
     Active Substance: METHYLPREDNISOLONE SODIUM SUCCINATE
     Indication: Acute lymphocytic leukaemia
     Dosage: 50 MG, CYCLE: 2, 4, 6, 8, EVERY 12 HRS X 6 DOSES, DAYS 1-3; CYCLIC
     Route: 042
     Dates: end: 20240127
  14. METHYLPREDNISOLONE SODIUM SUCCINATE [Suspect]
     Active Substance: METHYLPREDNISOLONE SODIUM SUCCINATE
     Indication: B-cell type acute leukaemia
  15. METHYLPREDNISOLONE SODIUM SUCCINATE [Suspect]
     Active Substance: METHYLPREDNISOLONE SODIUM SUCCINATE
     Indication: Philadelphia chromosome negative
  16. DEXAMETHASONE [Suspect]
     Active Substance: DEXAMETHASONE
     Dosage: 60-74 YRS: 20 MG; CYCLE: 1, 3, 5, 7; DAYS 1-4, DAYS 11-14; CYCLIC
     Route: 065

REACTIONS (6)
  - Upper respiratory tract infection [Recovering/Resolving]
  - Sputum discoloured [Recovering/Resolving]
  - Productive cough [Recovering/Resolving]
  - Dyspnoea exertional [Recovering/Resolving]
  - Rhinovirus infection [Unknown]
  - H1N1 influenza [Unknown]

NARRATIVE: CASE EVENT DATE: 20240221
